FAERS Safety Report 20004704 (Version 1)
Quarter: 2021Q4

REPORT INFORMATION
  Report Type: Spontaneous
  Country: JP (occurrence: JP)
  Receive Date: 20211027
  Receipt Date: 20211027
  Transmission Date: 20220303
  Serious: Yes (Hospitalization, Other)
  Sender: FDA-Public Use
  Company Number: JP-PFIZER INC-202101404163

PATIENT
  Sex: Male

DRUGS (1)
  1. RHEUMATREX [Suspect]
     Active Substance: METHOTREXATE SODIUM
     Indication: Psoriasis
     Dosage: 6 MG, WEEKLY
     Route: 048

REACTIONS (4)
  - Pancytopenia [Unknown]
  - Renal failure [Unknown]
  - Pneumonia [Unknown]
  - Overdose [Unknown]
